FAERS Safety Report 15938863 (Version 1)
Quarter: 2019Q1

REPORT INFORMATION
  Report Type: Spontaneous
  Country: US (occurrence: US)
  Receive Date: 20190208
  Receipt Date: 20190208
  Transmission Date: 20190417
  Serious: No
  Sender: FDA-Public Use
  Company Number: US-ROCHE-2230842

PATIENT

DRUGS (1)
  1. XOLAIR [Suspect]
     Active Substance: OMALIZUMAB
     Indication: PRODUCT USED FOR UNKNOWN INDICATION
     Route: 058
     Dates: start: 201710

REACTIONS (7)
  - Arthralgia [Unknown]
  - Asthma [Unknown]
  - Alopecia [Unknown]
  - Influenza [Unknown]
  - Nausea [Unknown]
  - Drug ineffective [Unknown]
  - Bone pain [Unknown]
